FAERS Safety Report 7556695-7 (Version None)
Quarter: 2011Q2

REPORT INFORMATION
  Report Type: 
  Country: None (occurrence: None)
  Receive Date: 20110620
  Receipt Date: 20110614
  Transmission Date: 20111010
  Serious: Yes (Other)
  Sender: FDA-Public Use
  Company Number: US-PFIZER INC-2011130803

PATIENT
  Sex: Female
  Weight: 58.957 kg

DRUGS (1)
  1. AZULFIDINE [Suspect]
     Indication: COLITIS ULCERATIVE
     Dosage: 500 MG, 4X/DAY
     Route: 048
     Dates: start: 20110216

REACTIONS (4)
  - PROCEDURAL PAIN [None]
  - CONVULSION [None]
  - HAEMORRHOIDS [None]
  - ARTHRALGIA [None]
